FAERS Safety Report 19382593 (Version 1)
Quarter: 2021Q2

REPORT INFORMATION
  Report Type: Spontaneous
  Country: DK (occurrence: DK)
  Receive Date: 20210607
  Receipt Date: 20210607
  Transmission Date: 20210717
  Serious: Yes (Disabling)
  Sender: FDA-Public Use
  Company Number: DK-PFIZER INC-2021572115

PATIENT
  Age: 32 Year
  Sex: Male

DRUGS (3)
  1. PREDNISOLON ^DLF^ [Concomitant]
     Active Substance: PREDNISOLONE
     Dosage: UNK
     Dates: start: 20190604, end: 20190812
  2. SALOFALK [MESALAZINE] [Concomitant]
     Active Substance: MESALAMINE
     Dosage: UNK
     Dates: start: 20190604
  3. ZESSLY [Suspect]
     Active Substance: INFLIXIMAB
     Indication: COLITIS
     Dosage: 800 MG (DOSIS: 400 MG 25JUN2019, 11JUL2019, 8AUG2019. 800 MG 3OKT2019, 14NOV2019)
     Route: 042
     Dates: start: 20190625, end: 20191114

REACTIONS (6)
  - Restlessness [Unknown]
  - Insomnia [Not Recovered/Not Resolved]
  - Tachycardia [Not Recovered/Not Resolved]
  - Folliculitis [Not Recovered/Not Resolved]
  - Fatigue [Not Recovered/Not Resolved]
  - Depressed mood [Not Recovered/Not Resolved]

NARRATIVE: CASE EVENT DATE: 20191006
